FAERS Safety Report 6021565-2 (Version None)
Quarter: 2008Q4

REPORT INFORMATION
  Report Type: 
  Country: None (occurrence: None)
  Receive Date: 20081229
  Receipt Date: 20081219
  Transmission Date: 20090506
  Serious: Yes (Hospitalization)
  Sender: FDA-Public Use
  Company Number: PHHY2008JP33085

PATIENT
  Age: 68 Year
  Sex: Male

DRUGS (1)
  1. FAMCICLOVIR [Suspect]
     Indication: HERPES ZOSTER
     Dosage: UNK
     Route: 048
     Dates: start: 20081113, end: 20081119

REACTIONS (1)
  - HYPONATRAEMIA [None]
